FAERS Safety Report 8012825-4 (Version None)
Quarter: 2011Q4

REPORT INFORMATION
  Report Type: 
  Country: None (occurrence: None)
  Receive Date: 20111229
  Receipt Date: 20111220
  Transmission Date: 20120403
  Serious: Yes (Other)
  Sender: FDA-Public Use
  Company Number: FR-BRISTOL-MYERS SQUIBB COMPANY-16263931

PATIENT
  Age: 21 Year
  Sex: Male
  Weight: 58 kg

DRUGS (3)
  1. ABILIFY [Suspect]
     Indication: PSYCHOTIC DISORDER
     Dosage: INITIAL DOSE WAS AT 15 MG/D AND THEN IT WAS REDUCED TO 10 MG/D AND 5 MG/D
     Route: 048
     Dates: start: 20111001, end: 20110101
  2. ABILIFY [Suspect]
     Indication: BORDERLINE PERSONALITY DISORDER
     Dosage: INITIAL DOSE WAS AT 15 MG/D AND THEN IT WAS REDUCED TO 10 MG/D AND 5 MG/D
     Route: 048
     Dates: start: 20111001, end: 20110101
  3. EFFEXOR [Concomitant]
     Indication: DEPRESSION
     Route: 048
     Dates: start: 20111001

REACTIONS (2)
  - VISION BLURRED [None]
  - ACCOMMODATION DISORDER [None]
